FAERS Safety Report 4319550-1 (Version None)
Quarter: 2004Q1

REPORT INFORMATION
  Report Type: 
  Country: None (occurrence: None)
  Receive Date: 20040316
  Receipt Date: 20040301
  Transmission Date: 20041129
  Serious: Yes (Hospitalization, Other)
  Sender: FDA-Public Use
  Company Number: USA040360532

PATIENT
  Age: 58 Year
  Sex: Female

DRUGS (3)
  1. HUMALOG [Suspect]
  2. HUMULIN N [Suspect]
  3. HUMULIN L [Suspect]

REACTIONS (4)
  - BLOOD GLUCOSE INCREASED [None]
  - CORONARY ARTERY SURGERY [None]
  - FEELING ABNORMAL [None]
  - PHARMACEUTICAL PRODUCT COMPLAINT [None]
